FAERS Safety Report 15753403 (Version 1)
Quarter: 2018Q4

REPORT INFORMATION
  Report Type: Spontaneous
  Country: US (occurrence: US)
  Receive Date: 20181222
  Receipt Date: 20181222
  Transmission Date: 20190205
  Serious: No
  Sender: FDA-Public Use
  Company Number: US-MALLINCKRODT-T201800974

PATIENT
  Sex: Female
  Weight: 58 kg

DRUGS (1)
  1. FENTANYL TRANSDERMAL SYSTEM [Suspect]
     Active Substance: FENTANYL
     Indication: PAIN
     Dosage: 50 MCG/HR, 1 PATCH EVERY 72 HOURS
     Route: 062
     Dates: start: 20180302

REACTIONS (2)
  - Rash [Unknown]
  - Pruritus [Unknown]
